FAERS Safety Report 4893261-6 (Version None)
Quarter: 2006Q1

REPORT INFORMATION
  Report Type: 
  Country: None (occurrence: None)
  Receive Date: 20060124
  Receipt Date: 20060118
  Transmission Date: 20060701
  Serious: Yes (Other)
  Sender: FDA-Public Use
  Company Number: HQWYE439219JAN06

PATIENT

DRUGS (1)
  1. EFFEXOR XR [Suspect]
     Dosage: 225 MG AND UP TO 300 MG DAILY, ORAL
     Route: 048

REACTIONS (1)
  - MEGACOLON [None]
